FAERS Safety Report 25627733 (Version 1)
Quarter: 2025Q3

REPORT INFORMATION
  Report Type: Spontaneous
  Country: EU (occurrence: EU)
  Receive Date: 20250731
  Receipt Date: 20250731
  Transmission Date: 20251020
  Serious: Yes (Other)
  Sender: TEVA
  Company Number: EU-TEVA-VS-3355985

PATIENT
  Age: 83 Year
  Sex: Male

DRUGS (6)
  1. ESCITALOPRAM [Suspect]
     Active Substance: ESCITALOPRAM OXALATE
     Indication: Sleep disorder
     Route: 048
     Dates: start: 20250717, end: 20250717
  2. LEUGON [Concomitant]
     Indication: Product used for unknown indication
     Dosage: PRE-FILLED SYRINGE WITH IMPLANT
     Route: 065
  3. HYDROXYUREA [Concomitant]
     Active Substance: HYDROXYUREA
     Indication: Product used for unknown indication
     Route: 065
  4. TERAZOSIN [Concomitant]
     Active Substance: TERAZOSIN HYDROCHLORIDE
     Indication: Product used for unknown indication
     Route: 065
  5. ASPIRIN [Concomitant]
     Active Substance: ASPIRIN
     Indication: Product used for unknown indication
     Dosage: RATIOPHARM PROTECT
     Route: 065
  6. PANTOPRAZOLE [Concomitant]
     Active Substance: PANTOPRAZOLE
     Indication: Product used for unknown indication

REACTIONS (6)
  - Arrhythmia [Recovering/Resolving]
  - Stress [Recovering/Resolving]
  - Visual impairment [Recovering/Resolving]
  - Mydriasis [Recovering/Resolving]
  - Heart rate abnormal [Unknown]
  - Photopsia [Recovering/Resolving]

NARRATIVE: CASE EVENT DATE: 20250717
